FAERS Safety Report 10055270 (Version 5)
Quarter: 2014Q2

REPORT INFORMATION
  Report Type: Spontaneous
  Country: US (occurrence: US)
  Receive Date: 20140403
  Receipt Date: 20140613
  Transmission Date: 20141212
  Serious: Yes (Hospitalization, Other)
  Sender: FDA-Public Use
  Company Number: US-BEH-2012031991

PATIENT
  Sex: Female
  Weight: 49 kg

DRUGS (32)
  1. HIZENTRA [Suspect]
     Dosage: HIZENTRA STARTED AT 6 G WEEKLY SINCE JUL-2011
     Route: 058
  2. HIZENTRA [Suspect]
     Indication: HUMORAL IMMUNE DEFECT
     Dosage: THERAPY BEGAIN IN 2010 UNTIL 2011
  3. HIZENTRA [Suspect]
     Indication: TRANSIENT HYPOGAMMAGLOBULINAEMIA OF INFANCY
     Dosage: RESTARTED HIZENTRA IN DEC-2012
     Route: 058
  4. HIZENTRA [Suspect]
     Dosage: DOSE INCREASED IN SEP-2012
     Route: 058
  5. OMEPRAZOLE [Concomitant]
     Dates: start: 20130107
  6. PROPANOLOL [Concomitant]
     Dates: start: 20121128
  7. DILTIAZEM [Concomitant]
  8. LYRICA [Concomitant]
  9. AMITRIPTYLINE [Concomitant]
  10. CLONAZEPAM [Concomitant]
     Indication: CONVULSION
     Dates: start: 20120525
  11. METHOCARBAMOL [Concomitant]
     Indication: MYALGIA
     Dates: start: 20120127
  12. TRAMADOL [Concomitant]
     Indication: PAIN
     Dates: start: 20120127
  13. VALACYCLOVIR [Concomitant]
  14. EPIPEN [Concomitant]
     Indication: HYPERSENSITIVITY
     Dosage: 0.3 MG/0.3ML
  15. PATANASE [Concomitant]
     Indication: HYPERSENSITIVITY
     Dosage: 0.6%, 2 SPRAYS IN EACH NOSTRIL
     Route: 055
     Dates: start: 20140227
  16. XOPENEX [Concomitant]
     Indication: ASTHMA
     Dosage: 2-4 PUFFS BEFORE EXERCISE AND ADDITIONALLY EVERY 4 HOURS AS DIRECTED
     Route: 055
     Dates: start: 20130107
  17. LEVALBUTEROL [Concomitant]
     Dosage: 1 AMPULE EVERY 4 HOURS AS NEEDED
     Route: 055
     Dates: start: 20131218
  18. AZELASTINE [Concomitant]
     Indication: NASOPHARYNGITIS
     Dosage: 2 SPRAYS EACH NOSTRIL
     Route: 055
     Dates: start: 20130627
  19. AZELASTINE [Concomitant]
     Indication: COUGH
     Dosage: 2 SPRAYS EACH NOSTRIL
     Route: 055
     Dates: start: 20130627
  20. NAPROSYN [Concomitant]
     Indication: PAIN
     Dates: start: 20130530
  21. PROMETHAZINE [Concomitant]
     Indication: HYPERSENSITIVITY
     Dates: start: 20130321
  22. AMLODIPINE BESYLATE [Concomitant]
     Dates: start: 20130530
  23. MELATONIN [Concomitant]
     Route: 060
     Dates: start: 20120127
  24. TIZANIDINE HCL [Concomitant]
     Dosage: 1-2 TABS (4 MG) UP TO 3 TIMES DAILY AS DIRECTED.
     Dates: start: 20130530
  25. INDOMETHACIN HCL [Concomitant]
     Indication: PAIN
     Dates: start: 20130626
  26. MECLOFENAMATE [Concomitant]
     Indication: MIGRAINE
     Dates: start: 20120127
  27. SUMATRIPTAN [Concomitant]
     Route: 045
     Dates: start: 20140227
  28. SUMATRIPTAN [Concomitant]
     Indication: MIGRAINE
     Dosage: 6 MG/0.5 ML
     Dates: start: 20140227
  29. SPIRONOLACTONE [Concomitant]
     Dates: start: 20140227
  30. DICYCLOMINE [Concomitant]
     Dates: start: 20130508
  31. ZOFRAN [Concomitant]
     Dosage: AS NEEDED
     Dates: start: 20130107
  32. HYOMAX-FT [Concomitant]
     Dosage: AS NEEDED
     Dates: start: 20110715

REACTIONS (13)
  - Pneumonia [Unknown]
  - Clostridium difficile colitis [Unknown]
  - Sinusitis [Unknown]
  - Infusion site mass [Unknown]
  - Skin disorder [Unknown]
  - Pain [Unknown]
  - Malaise [Unknown]
  - Fatigue [Unknown]
  - Nausea [Unknown]
  - Sinusitis [Not Recovered/Not Resolved]
  - Nasopharyngitis [Not Recovered/Not Resolved]
  - Ear infection [Not Recovered/Not Resolved]
  - Sinusitis [Not Recovered/Not Resolved]
